FAERS Safety Report 19357027 (Version 1)
Quarter: 2021Q2

REPORT INFORMATION
  Report Type: Spontaneous
  Country: US (occurrence: US)
  Receive Date: 20210602
  Receipt Date: 20210602
  Transmission Date: 20210717
  Serious: Yes (Hospitalization)
  Sender: FDA-Public Use
  Company Number: US-STRIDES ARCOLAB LIMITED-2021SP002413

PATIENT
  Age: 66 Year
  Sex: Female

DRUGS (3)
  1. ISOVUE [Suspect]
     Active Substance: IOPAMIDOL
     Indication: ELECTIVE PROCEDURE
     Dosage: UNK
     Route: 014
  2. BUPIVACAINE. [Suspect]
     Active Substance: BUPIVACAINE
     Indication: ELECTIVE PROCEDURE
     Dosage: 2CC OF 0.25 PERCENT
     Route: 014
  3. TRIAMCINOLONE ACETONIDE. [Suspect]
     Active Substance: TRIAMCINOLONE ACETONIDE
     Indication: ELECTIVE PROCEDURE
     Dosage: 40 MG/ML (3CC MIXTURE OF 1CC TRIAMCINOLONE)
     Route: 014

REACTIONS (2)
  - Clostridium difficile colitis [Unknown]
  - Off label use [Unknown]
